FAERS Safety Report 18618095 (Version 1)
Quarter: 2020Q4

REPORT INFORMATION
  Report Type: Report from Study
  Country: AT (occurrence: AT)
  Receive Date: 20201215
  Receipt Date: 20201215
  Transmission Date: 20210114
  Serious: Yes (Hospitalization)
  Sender: FDA-Public Use
  Company Number: AT-MYLANLABS-2020M1102871

PATIENT
  Age: 57 Year
  Sex: Female
  Weight: 86 kg

DRUGS (25)
  1. ENTEROBENE [Concomitant]
     Indication: DIARRHOEA
     Dosage: UNK(ONGOING = CHECKED)
     Dates: start: 20191015
  2. PASSEDAN [Concomitant]
     Dosage: UNK(ONGOING = CHECKED)
     Dates: start: 20191010
  3. SPIOLTO RESPIMAT [Concomitant]
     Active Substance: OLODATEROL HYDROCHLORIDE\TIOTROPIUM BROMIDE MONOHYDRATE
     Dosage: UNK(ONGOING = CHECKED)
  4. SIMVASTATIN. [Concomitant]
     Active Substance: SIMVASTATIN
     Dosage: UNK(ONGOING = CHECKED)
  5. BEROTEC [Concomitant]
     Active Substance: FENOTEROL HYDROBROMIDE
     Dosage: UNK(ONGOING = CHECKED)
  6. TRASTUZUMAB. [Suspect]
     Active Substance: TRASTUZUMAB
     Indication: BREAST CANCER
     Dosage: 704 MILLIGRAM, Q3W
     Route: 041
     Dates: start: 20191014, end: 20191014
  7. PACLITAXEL. [Suspect]
     Active Substance: PACLITAXEL
     Indication: BREAST CANCER
     Dosage: 151.26 MILLIGRAM, QW
     Route: 042
     Dates: start: 20191014, end: 20191014
  8. VITAMINS WITH MINERALS [Concomitant]
     Active Substance: MINERALS\VITAMINS
     Dosage: UNK(ONGOING = CHECKED)
  9. EFECTIN [Concomitant]
     Active Substance: VENLAFAXINE HYDROCHLORIDE
     Dosage: UNK(ONGOING = CHECKED)
  10. ACEMIN                             /00894001/ [Concomitant]
     Active Substance: LISINOPRIL
     Dosage: UNK(ONGOING = CHECKE)D
  11. MOLAXOLE [Concomitant]
     Active Substance: POLYETHYLENE GLYCOL 3350\POTASSIUM CHLORIDE\SODIUM BICARBONATE\SODIUM CHLORIDE
     Dosage: UNK(ONGOING = CHECKED)
     Dates: start: 20191015
  12. PASPERTIN                          /00041902/ [Concomitant]
     Active Substance: METOCLOPRAMIDE HYDROCHLORIDE
     Dosage: UNK(ONGOING = CHECKED)
     Dates: start: 20191015
  13. DILTIAZEM. [Concomitant]
     Active Substance: DILTIAZEM
     Dosage: UNK(ONGOING = CHECKED)
  14. KYTRIL [Concomitant]
     Active Substance: GRANISETRON HYDROCHLORIDE
     Dosage: UNK(ONGOING = CHECKED)
     Dates: start: 20191014
  15. PANTOLOC                           /01263201/ [Concomitant]
     Active Substance: PANTOPRAZOLE SODIUM
     Dosage: UNK(ONGOING = CHECKED)
  16. CONCOR [Concomitant]
     Active Substance: BISOPROLOL FUMARATE
     Dosage: UNK(ONGOING = CHECKED)
  17. FENISTIL [Concomitant]
     Active Substance: DIMETHINDENE
     Dosage: UNK(ONGOING = CHECKED)
     Dates: start: 20191014
  18. DEXAMETHASON                       /00016001/ [Concomitant]
     Active Substance: DEXAMETHASONE
     Dosage: UNK(ONGOING = CHECKED)
     Dates: start: 20191021
  19. NOVALGIN (METAMIZOLE SODIUM) [Concomitant]
     Active Substance: METAMIZOLE SODIUM
     Dosage: UNK(ONGOING = CHECKED)
     Dates: start: 20191015
  20. APREDNISLON [Concomitant]
     Active Substance: PREDNISOLONE
     Dosage: UNK(ONGOING = CHECKED)
  21. PERTUZUMAB. [Suspect]
     Active Substance: PERTUZUMAB
     Indication: BREAST CANCER
     Dosage: 840 MILLIGRAM, Q3W(MOST RECENT DOSE PRIOR TO THE EVENT: 06/NOV/2019)
     Route: 042
     Dates: start: 20191014
  22. ALVESCO [Concomitant]
     Active Substance: CICLESONIDE
     Dosage: UNK(ONGOING = CHECKED)
  23. TRITTICO [Concomitant]
     Active Substance: TRAZODONE HYDROCHLORIDE
     Dosage: UNK(ONGOING = CHECKED)
  24. ULSAL [Concomitant]
     Active Substance: RANITIDINE HYDROCHLORIDE
     Dosage: UNK(ONGOING = CHECKED)
     Dates: start: 20191014
  25. DAXAS [Concomitant]
     Active Substance: ROFLUMILAST
     Dosage: UNK(ONGOING = CHECKED)

REACTIONS (1)
  - C-reactive protein increased [Recovered/Resolved]

NARRATIVE: CASE EVENT DATE: 20191212
